FAERS Safety Report 25598568 (Version 1)
Quarter: 2025Q3

REPORT INFORMATION
  Report Type: Spontaneous
  Country: JP (occurrence: JP)
  Receive Date: 20250723
  Receipt Date: 20250723
  Transmission Date: 20251020
  Serious: Yes (Other)
  Sender: GLAXOSMITHKLINE
  Company Number: JP-GSKJP-JP2025JPN089912AA

PATIENT
  Age: 78 Year
  Sex: Female

DRUGS (1)
  1. VALTREX [Suspect]
     Active Substance: VALACYCLOVIR HYDROCHLORIDE
     Indication: Herpes zoster oticus

REACTIONS (5)
  - Toxic encephalopathy [Unknown]
  - Nephropathy toxic [Unknown]
  - Altered state of consciousness [Recovering/Resolving]
  - Renal failure [Recovering/Resolving]
  - Decreased appetite [Unknown]
